FAERS Safety Report 10900423 (Version 1)
Quarter: 2015Q1

REPORT INFORMATION
  Report Type: Spontaneous
  Country: NL (occurrence: None)
  Receive Date: 20150303
  Receipt Date: 20150303
  Transmission Date: 20150721
  Serious: Yes (Life-Threatening, Hospitalization)
  Sender: FDA-Public Use
  Company Number: NSR_01974_2015

PATIENT
  Age: 57 Year
  Sex: Male

DRUGS (11)
  1. PANTOPRAZOLE [Concomitant]
     Active Substance: PANTOPRAZOLE SODIUM
  2. BACLOFEN (BACLOFEN) 10 MG [Suspect]
     Active Substance: BACLOFEN
     Indication: BACK PAIN
     Dosage: 34 DF (NOT THE PRESCRIBED AMOUNT)
  3. AMLODIPINE [Concomitant]
     Active Substance: AMLODIPINE BESYLATE
  4. LOSARTAN [Concomitant]
     Active Substance: LOSARTAN
  5. CALCIUM CARBONATE AND VITAMIN D [Concomitant]
  6. DIAZEPAM. [Concomitant]
     Active Substance: DIAZEPAM
  7. METFORMIN [Concomitant]
     Active Substance: METFORMIN HYDROCHLORIDE
  8. DICLOFENAC [Concomitant]
     Active Substance: DICLOFENAC
  9. ALPRAZOLAM. [Concomitant]
     Active Substance: ALPRAZOLAM
  10. MIRTAZAPINE. [Concomitant]
     Active Substance: MIRTAZAPINE
  11. ROSUVASTATIN [Concomitant]
     Active Substance: ROSUVASTATIN

REACTIONS (13)
  - Loss of consciousness [None]
  - Blood sodium decreased [None]
  - Haemoglobin decreased [None]
  - Restlessness [None]
  - Heart rate decreased [None]
  - Blood glucose increased [None]
  - Respiratory rate decreased [None]
  - Overdose [None]
  - Somnolence [None]
  - Blood pressure increased [None]
  - No therapeutic response [None]
  - Body temperature decreased [None]
  - Continuous haemodiafiltration [None]
